FAERS Safety Report 21808696 (Version 2)
Quarter: 2025Q3

REPORT INFORMATION
  Report Type: Spontaneous
  Country: GB (occurrence: GB)
  Receive Date: 20230103
  Receipt Date: 20250703
  Transmission Date: 20251021
  Serious: Yes (Other)
  Sender: Steriscience PTE
  Company Number: GB-STERISCIENCE B.V.-2022-ST-000427

PATIENT
  Age: 18 Year
  Sex: Male

DRUGS (4)
  1. ONDANSETRON [Suspect]
     Active Substance: ONDANSETRON
     Indication: General anaesthesia
  2. FENTANYL [Suspect]
     Active Substance: FENTANYL
     Indication: General anaesthesia
  3. SCOPOLAMINE [Suspect]
     Active Substance: SCOPOLAMINE
     Indication: Scrotal pain
     Route: 042
  4. MIDAZOLAM [Concomitant]
     Active Substance: MIDAZOLAM
     Indication: Seizure

REACTIONS (2)
  - Central nervous system stimulation [Unknown]
  - Off label use [Unknown]
